FAERS Safety Report 6608654-6 (Version None)
Quarter: 2010Q1

REPORT INFORMATION
  Report Type: 
  Country: None (occurrence: None)
  Receive Date: 20100226
  Receipt Date: 20100226
  Transmission Date: 20100710
  Serious: No
  Sender: FDA-Public Use
  Company Number: None

PATIENT
  Age: 63 Year
  Sex: Female
  Weight: 107.9561 kg

DRUGS (12)
  1. DIVALPROEX SODIUM [Suspect]
     Dosage: 2250MG PO
     Route: 048
  2. CITALOPRAM HYDROBROMIDE [Concomitant]
     Dosage: 40MG PO
     Route: 048
  3. RISPERIDONE [Concomitant]
  4. CITALOPRAM HYDROBROMIDE [Concomitant]
  5. DEPAKOTE [Concomitant]
  6. THIAMINE [Concomitant]
  7. SIOMVASTATIN [Concomitant]
  8. OMEPRAZOLE [Concomitant]
  9. GEODON [Concomitant]
  10. EXELON [Concomitant]
  11. COLACE [Concomitant]
  12. QUETIAPINE [Concomitant]

REACTIONS (2)
  - MUSCLE CONTRACTIONS INVOLUNTARY [None]
  - UNRESPONSIVE TO STIMULI [None]
